FAERS Safety Report 9995420 (Version 2)
Quarter: 2022Q2

REPORT INFORMATION
  Report Type: Spontaneous
  Country: DE (occurrence: DE)
  Receive Date: 20140311
  Receipt Date: 20220624
  Transmission Date: 20220721
  Serious: Yes (Other)
  Sender: FDA-Public Use
  Company Number: None

PATIENT
  Age: 63 Year
  Sex: Male

DRUGS (2)
  1. CIPROFLOXACIN [Suspect]
     Active Substance: CIPROFLOXACIN
     Indication: Prostatitis
     Route: 048
  2. LEVOFLOXACIN [Suspect]
     Active Substance: LEVOFLOXACIN
     Indication: Prostatitis
     Route: 048

REACTIONS (24)
  - Memory impairment [Unknown]
  - Nodule [Unknown]
  - Alopecia [Unknown]
  - Cataract [Not Recovered/Not Resolved]
  - Skin fissures [Unknown]
  - Hyperkeratosis [Recovered/Resolved with Sequelae]
  - Fall [Unknown]
  - Mobility decreased [Unknown]
  - Prostate cancer [Unknown]
  - Extrasystoles [Not Recovered/Not Resolved]
  - Erysipelas [Unknown]
  - Hypertension [Unknown]
  - Glaucoma [Unknown]
  - Syncope [Unknown]
  - Hypoaesthesia [Not Recovered/Not Resolved]
  - Poor quality sleep [Unknown]
  - Pain in extremity [Unknown]
  - Depression [Unknown]
  - Skin burning sensation [Unknown]
  - Neuropathy peripheral [Unknown]
  - Vision blurred [Unknown]
  - Paraesthesia [Recovered/Resolved]
  - Tension headache [Not Recovered/Not Resolved]
  - Hypoaesthesia [Not Recovered/Not Resolved]

NARRATIVE: CASE EVENT DATE: 20040101
